FAERS Safety Report 10019699 (Version 2)
Quarter: 2014Q2

REPORT INFORMATION
  Report Type: Report from Study
  Country: DE (occurrence: DE)
  Receive Date: 20140318
  Receipt Date: 20140523
  Transmission Date: 20141212
  Serious: Yes (Other)
  Sender: FDA-Public Use
  Company Number: DE-ABBVIE-14P-062-1211877-00

PATIENT
  Age: 72 Year
  Sex: Female
  Weight: 65.9 kg

DRUGS (1)
  1. HUMIRA [Suspect]
     Indication: RHEUMATOID ARTHRITIS
     Route: 058
     Dates: start: 20110518

REACTIONS (3)
  - Meniscus injury [Recovered/Resolved]
  - Synovitis [Recovered/Resolved]
  - Knee arthroplasty [Recovered/Resolved]
